FAERS Safety Report 6422331-6 (Version None)
Quarter: 2009Q4

REPORT INFORMATION
  Report Type: 
  Country: None (occurrence: None)
  Receive Date: 20091030
  Receipt Date: 20091022
  Transmission Date: 20100525
  Serious: Yes (Hospitalization, Other)
  Sender: FDA-Public Use
  Company Number: CA-ABBOTT-09P-028-0594937-00

PATIENT
  Sex: Male
  Weight: 116 kg

DRUGS (9)
  1. KALETRA [Suspect]
     Indication: HIV INFECTION
     Dosage: 200/50MG X3 BID
     Route: 048
  2. RATIO-MORPHINE [Concomitant]
     Indication: DRUG USE FOR UNKNOWN INDICATION
  3. AMITRIPTYLINE [Concomitant]
     Indication: DRUG USE FOR UNKNOWN INDICATION
     Dosage: TAKEN AT BEDTIME
  4. APO-TRAZODONE [Concomitant]
     Indication: DRUG USE FOR UNKNOWN INDICATION
     Dosage: TAKEN AT BEDTIME
  5. ZANTAC [Concomitant]
     Indication: DRUG USE FOR UNKNOWN INDICATION
  6. SULFATRIM [Concomitant]
     Indication: DRUG USE FOR UNKNOWN INDICATION
  7. VALCYTE [Concomitant]
     Indication: DRUG USE FOR UNKNOWN INDICATION
  8. SUSTIVA [Concomitant]
     Indication: DRUG USE FOR UNKNOWN INDICATION
     Dosage: TAKEN AT BEDTIME
  9. TRUVADA [Concomitant]
     Indication: DRUG USE FOR UNKNOWN INDICATION

REACTIONS (7)
  - AMNESIA [None]
  - CYTOMEGALOVIRUS INFECTION [None]
  - MALNUTRITION [None]
  - OESOPHAGEAL RUPTURE [None]
  - OPPORTUNISTIC INFECTION [None]
  - RESORPTION BONE INCREASED [None]
  - WEIGHT INCREASED [None]
